FAERS Safety Report 5956942-9 (Version None)
Quarter: 2008Q4

REPORT INFORMATION
  Report Type: 
  Country: None (occurrence: None)
  Receive Date: 20081118
  Receipt Date: 20081110
  Transmission Date: 20090506
  Serious: Yes (Other)
  Sender: FDA-Public Use
  Company Number: US-PFIZER INC-2008095599

PATIENT
  Sex: Male
  Weight: 80 kg

DRUGS (2)
  1. CHANTIX [Suspect]
     Indication: SMOKING CESSATION THERAPY
     Dates: start: 20080101, end: 20080101
  2. DIAZEPAM [Concomitant]
     Indication: INSOMNIA

REACTIONS (2)
  - DEPRESSED MOOD [None]
  - HOMICIDAL IDEATION [None]
